FAERS Safety Report 6165241-4 (Version None)
Quarter: 2009Q2

REPORT INFORMATION
  Report Type: 
  Country: None (occurrence: None)
  Receive Date: 20090423
  Receipt Date: 20090416
  Transmission Date: 20091009
  Serious: Yes (Hospitalization, Other)
  Sender: FDA-Public Use
  Company Number: NO-ASTRAZENECA-2009SE01523

PATIENT
  Age: 783 Month
  Sex: Female

DRUGS (2)
  1. SYMBICORT [Suspect]
     Indication: ASTHMA
     Dosage: 160/4.5, MAXIMUM 8 INHALATIONS PER DAY
     Route: 055
  2. OXIS [Concomitant]
     Indication: ASTHMA
     Route: 055

REACTIONS (2)
  - BLINDNESS TRANSIENT [None]
  - CARDIAC FIBRILLATION [None]
